FAERS Safety Report 8408788 (Version 2)
Quarter: 2013Q2

REPORT INFORMATION
  Report Type: Spontaneous
  Country: US (occurrence: None)
  Receive Date: 20111227
  Receipt Date: 20120426
  Transmission Date: 20140414
  Serious: No
  Sender: FDA-Public Use
  Company Number: PHEH2011US05020

PATIENT
  Age: 64 Year
  Sex: Female
  Weight: 95.2 kg

DRUGS (12)
  1. GILENYA [Suspect]
     Indication: MULTIPLE SCLEROSIS
     Dosage: 0.5 MG, QD, ORAL
     Route: 048
     Dates: start: 20110823
  2. FLEXERIL [Concomitant]
  3. COUMADIN [Concomitant]
  4. NEURONTIN [Concomitant]
  5. BACLOFEN [Concomitant]
  6. SPIRONOLACTONE [Concomitant]
  7. LOSARTAN POTASSIUM [Concomitant]
  8. VITAMIN B12 [Concomitant]
  9. VITAMIN D (ERGOCALCIFEROL) [Concomitant]
  10. TYLENOL (PARACETAMOL) [Concomitant]
  11. POTASSIUM CHLORIDE [Concomitant]
  12. ASPIRIN [Concomitant]

REACTIONS (3)
  - FATIGUE [None]
  - SOMNOLENCE [None]
  - CONCOMITANT DISEASE AGGRAVATED [None]
